FAERS Safety Report 4569337-X (Version None)
Quarter: 2005Q1

REPORT INFORMATION
  Report Type: 
  Country: None (occurrence: None)
  Receive Date: 20050203
  Receipt Date: 20050128
  Transmission Date: 20050727
  Serious: Yes (Other)
  Sender: FDA-Public Use
  Company Number: US-GLAXOSMITHKLINE-A0543558A

PATIENT
  Age: 11 Year
  Sex: Male

DRUGS (3)
  1. LAMICTAL [Suspect]
     Indication: CONVULSION
     Route: 048
     Dates: start: 20040701
  2. TEGRETOL [Concomitant]
  3. TOPAMAX [Concomitant]

REACTIONS (7)
  - ABNORMAL BEHAVIOUR [None]
  - CONVULSION [None]
  - FATIGUE [None]
  - GRAND MAL CONVULSION [None]
  - NAUSEA [None]
  - THERAPEUTIC RESPONSE UNEXPECTED [None]
  - VOMITING [None]
